FAERS Safety Report 9953257 (Version 1)
Quarter: 2014Q1

REPORT INFORMATION
  Report Type: Report from Study
  Country: US (occurrence: US)
  Receive Date: 20140304
  Receipt Date: 20140304
  Transmission Date: 20141002
  Serious: No
  Sender: FDA-Public Use
  Company Number: US-ABBVIE-13P-163-1077326-00

PATIENT
  Age: 67 Year
  Sex: Female

DRUGS (23)
  1. HUMIRA [Suspect]
     Indication: RHEUMATOID ARTHRITIS
     Dosage: INITIAL DOSE
     Dates: start: 20130409
  2. METHOTREXATE [Concomitant]
     Indication: RHEUMATOID ARTHRITIS
  3. PLAQUENIL [Concomitant]
     Indication: RHEUMATOID ARTHRITIS
  4. ASA [Concomitant]
     Indication: PROPHYLAXIS
     Dosage: 81MG DAILY
  5. DOCUSATE SODIUM [Concomitant]
     Indication: CONSTIPATION
     Dosage: 2 TIMES DAILY AS NEEDED
  6. CALCIUM PLUS D3 [Concomitant]
     Indication: MINERAL SUPPLEMENTATION
     Dosage: 400MG DAILY
  7. CLARITIN-D [Concomitant]
     Indication: HYPERSENSITIVITY
  8. LISINOPRIL HCTZ [Concomitant]
     Indication: BLOOD PRESSURE
     Dosage: 10-12.5 ONE HALF TAB DAILY
  9. METFORMIN HCL [Concomitant]
     Indication: DIABETES MELLITUS
     Dosage: 1/2 TABLET MORNING DAILY
  10. LOVAZA [Concomitant]
     Indication: VITAMIN SUPPLEMENTATION
     Dosage: ONE TO TWO TIMES DAILY
  11. PROTONIX [Concomitant]
     Indication: DYSPEPSIA
     Dosage: 1/2 TAB DAILY
  12. POLYETHYLENE GLYCOL [Concomitant]
     Indication: CONSTIPATION
     Dosage: 17G IN WATER DAILY AS NEEDED
  13. VENTOLIN [Concomitant]
     Indication: HYPERSENSITIVITY
     Dosage: 1-2 PUFFS EVERY 8 HOURS AS NEEDED
  14. D3 [Concomitant]
     Indication: PRODUCT USED FOR UNKNOWN INDICATION
     Dosage: 3000 UNITS ONE DAILY WITH MEALS
  15. ZETIA [Concomitant]
     Indication: BLOOD CHOLESTEROL
  16. CLOBETASOL PROPIONATE [Concomitant]
     Indication: PSORIASIS
  17. CALCIPOTRIENE [Concomitant]
     Indication: PSORIASIS
     Dosage: 0.005/5 AS NEEDED
  18. VECTICAL [Concomitant]
     Indication: PSORIASIS
  19. NAPROXEN [Concomitant]
     Indication: RHEUMATOID ARTHRITIS
     Dosage: 1-2 TABLETS DAILY AS NEEDED
  20. TRAMADOL [Concomitant]
     Indication: ARTHRALGIA
     Dosage: 1-2 TABLETS AS NEEDED
  21. FOLIC ACID [Concomitant]
     Indication: VITAMIN SUPPLEMENTATION
     Dosage: 1-2 TIMES DAILY
  22. LATANOPROST [Concomitant]
     Indication: PRODUCT USED FOR UNKNOWN INDICATION
     Dosage: 0.005% ONE DROP RIGHT EYE BEDTIME DAILY
  23. COLGATE TOTAL [Concomitant]
     Indication: GINGIVAL PAIN
     Dosage: 500 MPM TOOTHPASTE

REACTIONS (3)
  - Movement disorder [Recovered/Resolved]
  - Influenza like illness [Recovered/Resolved]
  - Vomiting [Not Recovered/Not Resolved]
